FAERS Safety Report 4757824-0 (Version None)
Quarter: 2005Q3

REPORT INFORMATION
  Report Type: 
  Country: None (occurrence: None)
  Receive Date: 20050831
  Receipt Date: 20050804
  Transmission Date: 20060218
  Serious: Yes (Other)
  Sender: FDA-Public Use
  Company Number: US-KINGPHARMUSA00001-K200501049

PATIENT
  Sex: Male

DRUGS (3)
  1. TILADE [Suspect]
     Dates: start: 20050720, end: 20050701
  2. TILADE [Suspect]
     Dates: start: 20050101
  3. SERETIDE ^ALLEN + HANBURYS LTD^ [Suspect]

REACTIONS (1)
  - HEARING IMPAIRED [None]
